FAERS Safety Report 18653640 (Version 3)
Quarter: 2025Q4

REPORT INFORMATION
  Report Type: Report from Study
  Country: US (occurrence: US)
  Receive Date: 20201223
  Receipt Date: 20251112
  Transmission Date: 20260118
  Serious: Yes (Other)
  Sender: TAKEDA
  Company Number: US-TAKEDA-2020TUS058581

PATIENT
  Age: 62 Year
  Sex: Female

DRUGS (1)
  1. VEDOLIZUMAB [Suspect]
     Active Substance: VEDOLIZUMAB
     Indication: Crohn^s disease
     Dosage: 300 MILLIGRAM

REACTIONS (21)
  - Crohn^s disease [Unknown]
  - Type 2 diabetes mellitus [Unknown]
  - Transient ischaemic attack [Unknown]
  - Fibromyalgia [Unknown]
  - Product dose omission issue [Unknown]
  - Hiatus hernia [Unknown]
  - Chronic gastritis [Unknown]
  - Depression [Unknown]
  - Diabetic gastroparesis [Unknown]
  - Gastrooesophageal reflux disease [Unknown]
  - Iron deficiency anaemia [Unknown]
  - Osteoporosis [Unknown]
  - Hypertonic bladder [Unknown]
  - Sleep apnoea syndrome [Unknown]
  - Abdominal pain upper [Unknown]
  - Malaise [Unknown]
  - Blood potassium decreased [Unknown]
  - Haemorrhoids [Unknown]
  - Constipation [Unknown]
  - Cough [Unknown]
  - Fatigue [Unknown]
